FAERS Safety Report 24706284 (Version 2)
Quarter: 2025Q1

REPORT INFORMATION
  Report Type: Report from Study
  Country: US (occurrence: US)
  Receive Date: 20241206
  Receipt Date: 20250129
  Transmission Date: 20250409
  Serious: No
  Sender: SERVIER
  Company Number: US-SERVIER-S24013188

PATIENT

DRUGS (3)
  1. VORASIDENIB [Suspect]
     Active Substance: VORASIDENIB
     Indication: Brain neoplasm malignant
     Dosage: 40 MG, QD
     Route: 048
     Dates: start: 20240928, end: 2024
  2. VORASIDENIB [Suspect]
     Active Substance: VORASIDENIB
     Dosage: 40 MG, QD
     Route: 048
     Dates: start: 202411
  3. KEYTRUDA [Suspect]
     Active Substance: PEMBROLIZUMAB
     Indication: Brain neoplasm malignant
     Route: 065
     Dates: end: 2024

REACTIONS (5)
  - Hepatic enzyme increased [Recovering/Resolving]
  - Fatigue [Not Recovered/Not Resolved]
  - Gait disturbance [Unknown]
  - Haemoglobin decreased [Unknown]
  - Poor quality sleep [Unknown]

NARRATIVE: CASE EVENT DATE: 20240101
